FAERS Safety Report 24114415 (Version 1)
Quarter: 2024Q3

REPORT INFORMATION
  Report Type: Spontaneous
  Country: CN (occurrence: CN)
  Receive Date: 20240720
  Receipt Date: 20240720
  Transmission Date: 20241017
  Serious: Yes (Other)
  Sender: RANBAXY
  Company Number: CN-SUN PHARMACEUTICAL INDUSTRIES LTD-2024R1-455451

PATIENT
  Age: 60 Year
  Sex: Male

DRUGS (3)
  1. GEMCITABINE [Suspect]
     Active Substance: GEMCITABINE
     Indication: Chemotherapy
     Dosage: 1.6 GRAM/ D1 EVERY 14 DAYS
     Route: 065
     Dates: start: 201911
  2. LENALIDOMIDE [Suspect]
     Active Substance: LENALIDOMIDE
     Indication: Chemotherapy
     Dosage: 25 MILLIGRAM ON D1-D14 EVERY 21 DAYS
     Route: 065
  3. OXALIPLATIN [Suspect]
     Active Substance: OXALIPLATIN
     Indication: Chemotherapy
     Dosage: 150 MILLIGRAM/D1 EVERY 14 DAYS
     Route: 065

REACTIONS (1)
  - Disease progression [Unknown]
